FAERS Safety Report 24300937 (Version 1)
Quarter: 2024Q3

REPORT INFORMATION
  Report Type: Spontaneous
  Country: US (occurrence: US)
  Receive Date: 20240910
  Receipt Date: 20240910
  Transmission Date: 20241016
  Serious: Yes (Other)
  Sender: TEVA
  Company Number: US-TEVA-VS-3239139

PATIENT
  Age: 71 Year
  Sex: Female

DRUGS (1)
  1. METRONIDAZOLE [Suspect]
     Active Substance: METRONIDAZOLE
     Indication: Diverticulitis
     Route: 048

REACTIONS (8)
  - Near death experience [Unknown]
  - Product taste abnormal [Unknown]
  - Product use complaint [Unknown]
  - Product physical issue [Unknown]
  - Dyspnoea [Unknown]
  - Product use in unapproved indication [Unknown]
  - Product prescribing issue [Unknown]
  - Aspiration [Unknown]
